FAERS Safety Report 14860778 (Version 1)
Quarter: 2018Q2

REPORT INFORMATION
  Report Type: Spontaneous
  Country: US (occurrence: US)
  Receive Date: 20180423
  Receipt Date: 20180423
  Transmission Date: 20180711
  Serious: Yes (Hospitalization, Other)
  Sender: FDA-Public Use
  Company Number: None

PATIENT
  Age: 44 Year
  Sex: Male
  Weight: 135.8 kg

DRUGS (4)
  1. BYETTA [Suspect]
     Active Substance: EXENATIDE
     Indication: HYPERTRIGLYCERIDAEMIA
     Dates: start: 20170330, end: 20170615
  2. VICTOZA [Suspect]
     Active Substance: LIRAGLUTIDE
     Indication: HYPERGLYCAEMIA
     Dates: start: 20161011, end: 20170919
  3. BYETTA [Suspect]
     Active Substance: EXENATIDE
     Indication: HYPERGLYCAEMIA
     Dates: start: 20170330, end: 20170615
  4. VICTOZA [Suspect]
     Active Substance: LIRAGLUTIDE
     Indication: HYPERTRIGLYCERIDAEMIA
     Dates: start: 20161011, end: 20170919

REACTIONS (4)
  - Back pain [None]
  - Haematochezia [None]
  - Colorectal cancer metastatic [None]
  - Abdominal pain [None]

NARRATIVE: CASE EVENT DATE: 20170919
